FAERS Safety Report 23465014 (Version 3)
Quarter: 2024Q1

REPORT INFORMATION
  Report Type: Spontaneous
  Country: DE (occurrence: DE)
  Receive Date: 20240201
  Receipt Date: 20240319
  Transmission Date: 20240410
  Serious: Yes (Other)
  Sender: FDA-Public Use
  Company Number: DE-TEVA-VS-3150457

PATIENT
  Age: 78 Year
  Sex: Male

DRUGS (1)
  1. DUTASTERIDE\TAMSULOSIN [Suspect]
     Active Substance: DUTASTERIDE\TAMSULOSIN
     Indication: Benign neoplasm of prostate
     Dosage: 0,5 MG/0,4MG
     Route: 065
     Dates: start: 20240103, end: 20240122

REACTIONS (2)
  - Vision blurred [Recovered/Resolved]
  - Vitreous floaters [Recovering/Resolving]
